FAERS Safety Report 10267540 (Version 1)
Quarter: 2014Q2

REPORT INFORMATION
  Report Type: Spontaneous
  Country: US (occurrence: US)
  Receive Date: 20140630
  Receipt Date: 20140630
  Transmission Date: 20141212
  Serious: No
  Sender: FDA-Public Use
  Company Number: US-PFIZER INC-2014176873

PATIENT
  Age: 48 Year
  Sex: Female
  Weight: 57.6 kg

DRUGS (5)
  1. CHANTIX [Suspect]
     Indication: SMOKING CESSATION THERAPY
     Dosage: UNK
  2. CHANTIX [Suspect]
     Dosage: UNK
     Dates: start: 201311
  3. CHANTIX [Suspect]
     Dosage: 0.5 MG, UNK
     Dates: start: 2014
  4. CHANTIX [Suspect]
  5. VICODIN [Concomitant]
     Indication: PAIN
     Dosage: UNK

REACTIONS (2)
  - Drug ineffective [Unknown]
  - Drug dispensing error [Unknown]
